FAERS Safety Report 7502687-3 (Version None)
Quarter: 2011Q2

REPORT INFORMATION
  Report Type: 
  Country: None (occurrence: None)
  Receive Date: 20110525
  Receipt Date: 20110511
  Transmission Date: 20111010
  Serious: Yes (Other)
  Sender: FDA-Public Use
  Company Number: PHHY2011IL36647

PATIENT
  Age: 77 Year
  Sex: Male

DRUGS (1)
  1. ZOLEDRONIC ACID [Suspect]
     Dosage: UNK

REACTIONS (5)
  - BUCCAL MUCOSAL ROUGHENING [None]
  - PAIN [None]
  - OSTEONECROSIS OF JAW [None]
  - SWELLING [None]
  - EXPOSED BONE IN JAW [None]
